FAERS Safety Report 20551995 (Version 7)
Quarter: 2022Q4

REPORT INFORMATION
  Report Type: Report from Study
  Country: CO (occurrence: CO)
  Receive Date: 20220304
  Receipt Date: 20221015
  Transmission Date: 20230112
  Serious: Yes (Hospitalization, Disabling, Other)
  Sender: FDA-Public Use
  Company Number: CO-ABBVIE-21K-036-4199390-00

PATIENT
  Sex: Female
  Weight: 68 kg

DRUGS (2)
  1. HUMIRA [Suspect]
     Active Substance: ADALIMUMAB
     Indication: Psoriatic arthropathy
     Dosage: 40MG/0.8ML
     Route: 058
     Dates: start: 20170127
  2. HUMIRA [Suspect]
     Active Substance: ADALIMUMAB

REACTIONS (21)
  - Deafness [Not Recovered/Not Resolved]
  - Gait disturbance [Not Recovered/Not Resolved]
  - Vertigo [Not Recovered/Not Resolved]
  - Discouragement [Recovering/Resolving]
  - Balance disorder [Not Recovered/Not Resolved]
  - Illness [Not Recovered/Not Resolved]
  - Dizziness [Recovering/Resolving]
  - Hypoacusis [Not Recovered/Not Resolved]
  - Malaise [Not Recovered/Not Resolved]
  - Mental disorder [Not Recovered/Not Resolved]
  - Tinnitus [Not Recovered/Not Resolved]
  - Inflammation [Not Recovered/Not Resolved]
  - Feeling of despair [Not Recovered/Not Resolved]
  - Pain in extremity [Recovering/Resolving]
  - Discomfort [Recovered/Resolved]
  - Back pain [Recovering/Resolving]
  - Headache [Recovering/Resolving]
  - Discomfort [Recovering/Resolving]
  - Suspected COVID-19 [Recovering/Resolving]
  - Psoriatic arthropathy [Not Recovered/Not Resolved]
  - Arthralgia [Not Recovered/Not Resolved]

NARRATIVE: CASE EVENT DATE: 20210101
